FAERS Safety Report 15525399 (Version 3)
Quarter: 2020Q1

REPORT INFORMATION
  Report Type: Spontaneous
  Country: CA (occurrence: CA)
  Receive Date: 20181018
  Receipt Date: 20200326
  Transmission Date: 20200409
  Serious: Yes (Hospitalization)
  Sender: FDA-Public Use
  Company Number: CA-GLAXOSMITHKLINE-CA2018188797

PATIENT
  Age: 2 Year
  Sex: Female

DRUGS (1)
  1. NICOTINE. [Suspect]
     Active Substance: NICOTINE
     Indication: PRODUCT USED FOR UNKNOWN INDICATION
     Dosage: UNK
     Route: 048
     Dates: start: 20030803

REACTIONS (4)
  - Feeling cold [Unknown]
  - Pallor [Unknown]
  - Vomiting [Unknown]
  - Accidental overdose [Unknown]

NARRATIVE: CASE EVENT DATE: 20030803
